FAERS Safety Report 4537076-7 (Version None)
Quarter: 2004Q4

REPORT INFORMATION
  Report Type: 
  Country: None (occurrence: None)
  Receive Date: 20041223
  Receipt Date: 20040803
  Transmission Date: 20050328
  Serious: Yes (Other)
  Sender: FDA-Public Use
  Company Number: US-GLAXOSMITHKLINE-A0532857A

PATIENT
  Age: 60 Year
  Sex: Female

DRUGS (6)
  1. PAXIL [Suspect]
     Indication: GENERALISED ANXIETY DISORDER
     Route: 048
     Dates: start: 20030801
  2. PAXIL CR [Suspect]
     Indication: GENERALISED ANXIETY DISORDER
     Dosage: 25Z PER DAY
     Route: 048
     Dates: start: 20040801
  3. ALEVE COLD AND SINUS [Suspect]
  4. XANAX [Concomitant]
  5. HYDROCHLOROTHIAZIDE [Concomitant]
  6. ESTRACE [Concomitant]

REACTIONS (15)
  - ANXIETY [None]
  - BLOOD GLUCOSE FLUCTUATION [None]
  - CONDITION AGGRAVATED [None]
  - DIZZINESS [None]
  - DRUG WITHDRAWAL SYNDROME [None]
  - FEELING JITTERY [None]
  - FLUSHING [None]
  - HEADACHE [None]
  - HYPERGLYCAEMIA [None]
  - HYPERHIDROSIS [None]
  - HYPOGLYCAEMIA [None]
  - NAUSEA [None]
  - NIGHT SWEATS [None]
  - PARAESTHESIA [None]
  - VISION BLURRED [None]
